FAERS Safety Report 17462770 (Version 1)
Quarter: 2020Q1

REPORT INFORMATION
  Report Type: Spontaneous
  Country: US (occurrence: US)
  Receive Date: 20200213
  Receipt Date: 20200213
  Transmission Date: 20200409
  Serious: No
  Sender: FDA-Public Use
  Company Number: None

PATIENT
  Age: 30 Year
  Sex: Male

DRUGS (1)
  1. SEMAGLUTIDE (SEMAGLUTIDE 1MG/0.75ML INJ, SOLN, PEN, 1.5ML) [Suspect]
     Active Substance: SEMAGLUTIDE
     Indication: OBESITY
     Route: 058
     Dates: start: 20191002, end: 20200205

REACTIONS (3)
  - Hypoglycaemia [None]
  - Blood glucose decreased [None]
  - Abdominal pain [None]

NARRATIVE: CASE EVENT DATE: 20200205
